FAERS Safety Report 10244685 (Version 1)
Quarter: 2014Q2

REPORT INFORMATION
  Report Type: Spontaneous
  Country: DK (occurrence: DK)
  Receive Date: 20140618
  Receipt Date: 20140618
  Transmission Date: 20141212
  Serious: Yes (Other)
  Sender: FDA-Public Use
  Company Number: DK-GLAXOSMITHKLINE-B1004855A

PATIENT
  Sex: Male

DRUGS (2)
  1. LAMICTAL [Suspect]
     Indication: EPILEPSY
     Dosage: 300MG PER DAY
     Dates: end: 20140428
  2. VALPROAT [Concomitant]
     Dosage: 2000MG PER DAY
     Dates: start: 20140202

REACTIONS (4)
  - Epilepsy [Not Recovered/Not Resolved]
  - Rash generalised [Unknown]
  - Pruritus [Unknown]
  - Affective disorder [Unknown]
